FAERS Safety Report 20623139 (Version 3)
Quarter: 2022Q3

REPORT INFORMATION
  Report Type: Spontaneous
  Country: CN (occurrence: CN)
  Receive Date: 20220322
  Receipt Date: 20220816
  Transmission Date: 20221027
  Serious: Yes (Life-Threatening, Other)
  Sender: FDA-Public Use
  Company Number: CN-CELGENE-CHN-20211107490

PATIENT
  Age: 54 Year
  Sex: Male
  Weight: 57 kg

DRUGS (2)
  1. AZACITIDINE [Suspect]
     Active Substance: AZACITIDINE
     Indication: Myelodysplastic syndrome
     Dosage: 75 MG/M2 ON 7 DAYS WITHIN THE FIRST 9 CALENDAR DAYS  PER 28 DAY CYCLE
     Route: 058
     Dates: start: 20211103, end: 20211109
  2. VENETOCLAX [Suspect]
     Active Substance: VENETOCLAX
     Indication: Myelodysplastic syndrome
     Dosage: (DAYS 1 - 14 OF EACH 28-DAY CYCLE) AT 400 MG, 1 IN 1 DAY
     Route: 048
     Dates: start: 20211103, end: 20211116

REACTIONS (2)
  - Intestinal obstruction [Recovered/Resolved]
  - Gastrointestinal infection [Recovered/Resolved]

NARRATIVE: CASE EVENT DATE: 20211118
